FAERS Safety Report 9499545 (Version 1)
Quarter: 2013Q3

REPORT INFORMATION
  Report Type: Spontaneous
  Country: FR (occurrence: FR)
  Receive Date: 20130905
  Receipt Date: 20130905
  Transmission Date: 20140515
  Serious: Yes (Other)
  Sender: FDA-Public Use
  Company Number: FR-BRISTOL-MYERS SQUIBB COMPANY-19230655

PATIENT
  Age: 72 Year
  Sex: Female

DRUGS (6)
  1. ELIQUIS [Suspect]
     Indication: KNEE ARTHROPLASTY
     Route: 048
     Dates: start: 20130723, end: 20130730
  2. LEVOTHYROX [Concomitant]
  3. ISOPTINE [Concomitant]
  4. INDAPAMIDE [Concomitant]
  5. ETIOVEN [Concomitant]
  6. DAFALGAN [Concomitant]

REACTIONS (2)
  - Rectal haemorrhage [Recovered/Resolved]
  - Haemorrhoids [Unknown]
